FAERS Safety Report 8302707-2 (Version None)
Quarter: 2012Q2

REPORT INFORMATION
  Report Type: 
  Country: None (occurrence: None)
  Receive Date: 20120420
  Receipt Date: 20120411
  Transmission Date: 20120825
  Serious: Yes (Other)
  Sender: FDA-Public Use
  Company Number: JP-AMGEN-JPNCT2011068262

PATIENT
  Age: 48 Year
  Sex: Female
  Weight: 69 kg

DRUGS (17)
  1. MUCOSTA [Concomitant]
     Indication: GASTRITIS
     Dosage: UNCERTAINTY
     Route: 048
  2. DEXAMETHASONE SODIUM PHOSPHATE [Concomitant]
     Indication: IDIOPATHIC THROMBOCYTOPENIC PURPURA
     Dosage: 33 MG, UNK
     Dates: start: 20110808, end: 20110811
  3. MAGNESIUM OXIDE [Concomitant]
     Indication: CONSTIPATION
     Dosage: UNK
     Route: 048
  4. LAXOBERON [Concomitant]
     Indication: CONSTIPATION
     Dosage: UNK
     Route: 048
  5. ALENDRONATE SODIUM [Concomitant]
     Indication: OSTEOPOROSIS
     Dosage: UNCERTAINTY
     Route: 048
  6. DIOVAN [Concomitant]
     Indication: HYPERTENSION
     Dosage: UNCERTAINTY
     Route: 048
  7. LANSOPRAZOLE [Concomitant]
     Indication: GASTROOESOPHAGEAL REFLUX DISEASE
     Dosage: UNK
     Route: 048
  8. KETOPROFEN [Concomitant]
     Indication: BACK PAIN
     Dosage: UNCERTAINTY
     Route: 061
  9. NASANYL [Concomitant]
     Indication: MENORRHAGIA
     Dosage: UNCERTAINTY
     Route: 045
  10. ROMIPLOSTIM - KHK [Suspect]
     Indication: IDIOPATHIC THROMBOCYTOPENIC PURPURA
     Dosage: UNK UNK, QWK
     Route: 058
     Dates: start: 20110502
  11. NORVASC [Concomitant]
     Indication: HYPERTENSION
     Dosage: UNK
     Route: 048
  12. DECADRON [Suspect]
     Indication: IDIOPATHIC THROMBOCYTOPENIC PURPURA
     Dosage: UNK
     Route: 048
     Dates: start: 20110921
  13. ADONA [Concomitant]
     Indication: IDIOPATHIC THROMBOCYTOPENIC PURPURA
     Dosage: UNK
     Route: 048
     Dates: start: 20100604, end: 20110703
  14. DEPAS [Concomitant]
     Indication: ANXIETY DISORDER
     Dosage: UNCERTAINTY
     Route: 048
  15. LASIX [Concomitant]
     Indication: HYPERTENSION
     Dosage: UNCERTAINTY
     Route: 065
  16. ALOCHINON [Concomitant]
     Indication: HYPERTENSION
     Dosage: UNK
     Route: 048
  17. ALLOPURINOL [Concomitant]
     Indication: HYPERURICAEMIA
     Dosage: UNK
     Route: 048

REACTIONS (6)
  - CEREBRAL HAEMORRHAGE [None]
  - GASTROINTESTINAL HAEMORRHAGE [None]
  - WHITE BLOOD CELL COUNT INCREASED [None]
  - LIVER DISORDER [None]
  - ANAEMIA [None]
  - NEUTROPHIL COUNT INCREASED [None]
